FAERS Safety Report 18411452 (Version 1)
Quarter: 2020Q4

REPORT INFORMATION
  Report Type: Spontaneous
  Country: US (occurrence: US)
  Receive Date: 20201021
  Receipt Date: 20201021
  Transmission Date: 20210114
  Serious: No
  Sender: FDA-Public Use
  Company Number: US-STRONGBRIDGE BIOPHARMA-2020-STR-000267

PATIENT
  Sex: Female

DRUGS (1)
  1. KEVEYIS [Suspect]
     Active Substance: DICHLORPHENAMIDE
     Indication: PRODUCT USED FOR UNKNOWN INDICATION
     Dosage: 25 MG QD OR BID
     Route: 048
     Dates: start: 2018

REACTIONS (6)
  - Thirst [Unknown]
  - Wrong technique in product usage process [Unknown]
  - Dysuria [Unknown]
  - Oedema peripheral [Unknown]
  - Fluid retention [Unknown]
  - Weight increased [Unknown]
